FAERS Safety Report 8381384-9 (Version None)
Quarter: 2012Q2

REPORT INFORMATION
  Report Type: 
  Country: None (occurrence: None)
  Receive Date: 20120523
  Receipt Date: 20120517
  Transmission Date: 20120825
  Serious: Yes (Other)
  Sender: FDA-Public Use
  Company Number: PHHY2012FR042293

PATIENT
  Age: 44 Year
  Sex: Male

DRUGS (3)
  1. METHADONE HCL [Suspect]
     Dosage: 160 MG, UNK
  2. PAROXETINE HCL [Interacting]
     Dosage: 20 MG, UNK
  3. ALPRAZOLAM [Concomitant]
     Dosage: 0.50 MG, PER DAY

REACTIONS (5)
  - EXTRASYSTOLES [None]
  - ELECTROCARDIOGRAM QT PROLONGED [None]
  - DRUG INTERACTION [None]
  - SYNCOPE [None]
  - TORSADE DE POINTES [None]
